FAERS Safety Report 7945144-2 (Version None)
Quarter: 2011Q4

REPORT INFORMATION
  Report Type: 
  Country: None (occurrence: None)
  Receive Date: 20111122
  Receipt Date: 20111118
  Transmission Date: 20120403
  Serious: Yes (Death, Hospitalization)
  Sender: FDA-Public Use
  Company Number: 2011SP036178

PATIENT
  Age: 60 Year
  Sex: Male
  Weight: 63 kg

DRUGS (13)
  1. EPHEDRINE HYDROCHLORIDE [Concomitant]
  2. ULTIVA [Concomitant]
  3. ROPIVACAINE HYDROCHLORIDE [Concomitant]
  4. FLUMARIN [Concomitant]
  5. PREDNISOLONE [Concomitant]
  6. FRESH FROZEN PLASMA [Concomitant]
  7. SUGAMMADEX SODIUM [Suspect]
     Indication: NEUROMUSCULAR BLOCKADE REVERSAL
     Dosage: 200 MG; ;IV
     Route: 042
     Dates: start: 20110420, end: 20110420
  8. FENTANYL [Concomitant]
  9. DROPERIDOL [Concomitant]
  10. ROCURONIUM BROMIDE [Concomitant]
  11. FAMOTIDINE [Concomitant]
  12. FLURBIPROFEN [Concomitant]
  13. DIPRIVAN [Concomitant]

REACTIONS (10)
  - HEPATIC FAILURE [None]
  - CONDITION AGGRAVATED [None]
  - PLEURAL EFFUSION [None]
  - ASCITES [None]
  - CARDIAC ARREST [None]
  - RESPIRATORY ARREST [None]
  - HEPATIC FUNCTION ABNORMAL [None]
  - HEPATIC ENCEPHALOPATHY [None]
  - STRESS [None]
  - DISEASE PROGRESSION [None]
